FAERS Safety Report 20886565 (Version 9)
Quarter: 2025Q3

REPORT INFORMATION
  Report Type: Report from Study
  Country: US (occurrence: US)
  Receive Date: 20220527
  Receipt Date: 20250715
  Transmission Date: 20251021
  Serious: Yes (Hospitalization)
  Sender: NOVARTIS
  Company Number: US-NOVARTISTESTPH-NVSC2022US122760

PATIENT
  Sex: Female

DRUGS (1)
  1. COSENTYX [Suspect]
     Active Substance: SECUKINUMAB
     Indication: Psoriatic arthropathy
     Dosage: 300 MG, QMO (EVERY 4 WEEKS)
     Route: 058

REACTIONS (5)
  - Cellulitis [Unknown]
  - Pain [Not Recovered/Not Resolved]
  - Injection site pain [Unknown]
  - Nerve injury [Unknown]
  - Therapeutic product effect incomplete [Unknown]
